FAERS Safety Report 6184153-3 (Version None)
Quarter: 2009Q2

REPORT INFORMATION
  Report Type: 
  Country: None (occurrence: None)
  Receive Date: 20090508
  Receipt Date: 20090504
  Transmission Date: 20091009
  Serious: No
  Sender: FDA-Public Use
  Company Number: US-B.I. PHARMACEUTICALS,INC./RIDGEFIELD-2009-BP-05615BP

PATIENT
  Sex: Male

DRUGS (6)
  1. ATROVENT HFA [Suspect]
     Indication: EMPHYSEMA
     Dosage: 136MCG
     Dates: start: 20090502
  2. PROSCAR [Concomitant]
     Indication: PROSTATOMEGALY
     Dosage: 5MG
     Route: 048
     Dates: start: 19940101
  3. SYMVASTIN [Concomitant]
     Indication: ATRIAL FIBRILLATION
  4. WARFARIN SODIUM [Concomitant]
     Indication: ATRIAL FIBRILLATION
  5. LISINOPRIL [Concomitant]
     Indication: HYPERTENSION
  6. BYSTOLIC [Concomitant]
     Indication: ATRIAL FIBRILLATION

REACTIONS (1)
  - OCULAR HYPERAEMIA [None]
